FAERS Safety Report 8907495 (Version 3)
Quarter: 2013Q3

REPORT INFORMATION
  Report Type: Report from Study
  Country: MX (occurrence: MX)
  Receive Date: 20121113
  Receipt Date: 20130909
  Transmission Date: 20140515
  Serious: Yes (Hospitalization, Other)
  Sender: FDA-Public Use
  Company Number: MX-PFIZER INC-2012259236

PATIENT
  Age: 73 Year
  Sex: Female
  Weight: 72 kg

DRUGS (12)
  1. TOFACITINIB CITRATE [Suspect]
     Indication: RHEUMATOID ARTHRITIS
     Dosage: 5 MG, 2X/DAY
     Route: 048
     Dates: start: 20071108, end: 20121016
  2. METHOTREXATE [Concomitant]
     Indication: RHEUMATOID ARTHRITIS
     Dosage: 12.5 MG, WEEKLY
     Route: 048
     Dates: start: 20111110
  3. FOLIC ACID [Concomitant]
     Indication: RHEUMATOID ARTHRITIS
     Dosage: 10 MG, WEEKLY
     Route: 048
     Dates: start: 20070611
  4. ACETAMINOPHEN [Concomitant]
     Indication: RHEUMATOID ARTHRITIS
     Dosage: 2600 MG, AS NEEDED
     Route: 048
     Dates: start: 20071003
  5. ISOSORBIDE [Concomitant]
     Indication: MYOCARDIAL ISCHAEMIA
     Dosage: 20 MG, 1X/DAY
     Route: 048
     Dates: start: 20120403
  6. METOPROLOL [Concomitant]
     Indication: MYOCARDIAL ISCHAEMIA
     Dosage: 50 MG, 1X/DAY
     Route: 048
     Dates: start: 20120403
  7. AMLODIPINE [Concomitant]
     Indication: MYOCARDIAL ISCHAEMIA
     Dosage: 5 MG, 1X/DAY
     Route: 048
     Dates: start: 20120403
  8. LISINOPRIL [Concomitant]
     Indication: HYPERTENSION
     Dosage: 20 MG, 1X/DAY
     Route: 048
     Dates: start: 20100818
  9. PRAVASTATIN [Concomitant]
     Indication: DYSLIPIDAEMIA
     Dosage: 20 MG, 1X/DAY
     Route: 048
     Dates: start: 20120403
  10. BEZAFIBRATE [Concomitant]
     Indication: DYSLIPIDAEMIA
     Dosage: 400 MG, 1X/DAY
     Route: 048
     Dates: start: 20070611
  11. ACETYLSALICYLIC ACID [Concomitant]
     Indication: ISCHAEMIC HEART DISEASE PROPHYLAXIS
     Dosage: 150 MG, 1X/DAY
     Route: 048
     Dates: start: 20100610
  12. RANITIDINE [Concomitant]
     Indication: PROPHYLAXIS
     Dosage: 150 MG, AS NEEDED
     Route: 048
     Dates: start: 20030910

REACTIONS (1)
  - Angina unstable [Recovered/Resolved]
